FAERS Safety Report 19210630 (Version 1)
Quarter: 2021Q2

REPORT INFORMATION
  Report Type: Spontaneous
  Country: None (occurrence: CA)
  Receive Date: 20210504
  Receipt Date: 20210504
  Transmission Date: 20210717
  Serious: Yes (Other)
  Sender: FDA-Public Use
  Company Number: CA-OXFORD PHARMACEUTICALS, LLC-2110177

PATIENT
  Age: 47 Year
  Sex: Female

DRUGS (13)
  1. TIOTROPIUM [Suspect]
     Active Substance: TIOTROPIUM
  2. DIVALPROEX SODIUM. [Suspect]
     Active Substance: DIVALPROEX SODIUM
  3. FLUOXETINE [Suspect]
     Active Substance: FLUOXETINE HYDROCHLORIDE
     Route: 048
  4. ATENOLOL. [Suspect]
     Active Substance: ATENOLOL
  5. ESTRADIOL. [Suspect]
     Active Substance: ESTRADIOL
     Route: 048
  6. FUROSEMIDE. [Suspect]
     Active Substance: FUROSEMIDE
     Route: 048
  7. LORAZEPAM. [Suspect]
     Active Substance: LORAZEPAM
  8. SALBUTAMOL [Suspect]
     Active Substance: ALBUTEROL
  9. DOXEPIN HYDROCHLORIDE. [Suspect]
     Active Substance: DOXEPIN HYDROCHLORIDE
  10. GABAPENTIN. [Suspect]
     Active Substance: GABAPENTIN
     Route: 048
  11. NAPROXEN. [Suspect]
     Active Substance: NAPROXEN
     Route: 048
  12. CYCLOBENZAPRINE. [Suspect]
     Active Substance: CYCLOBENZAPRINE
     Indication: PAIN
  13. METHADONE [Suspect]
     Active Substance: METHADONE HYDROCHLORIDE
     Route: 048

REACTIONS (4)
  - Respiratory depression [Unknown]
  - Depressed level of consciousness [Unknown]
  - Unresponsive to stimuli [Unknown]
  - Toxicity to various agents [Unknown]
